FAERS Safety Report 23154762 (Version 1)
Quarter: 2023Q4

REPORT INFORMATION
  Report Type: Other
  Country: None (occurrence: US)
  Receive Date: 20231107
  Receipt Date: 20231107
  Transmission Date: 20240110
  Serious: Yes (Hospitalization, Disabling, Other)
  Sender: FDA-Public Use
  Company Number: US-Breckenridge Pharmaceutical, Inc.-2147943

PATIENT
  Age: 60 Year
  Sex: Male

DRUGS (6)
  1. ARIPIPRAZOLE [Suspect]
     Active Substance: ARIPIPRAZOLE
     Indication: Bipolar I disorder
     Route: 048
  2. SERTRALINE [Concomitant]
     Active Substance: SERTRALINE HYDROCHLORIDE
  3. LITHIUM [Interacting]
     Active Substance: LITHIUM
  4. BROMOCRIPTINE MESYLATE [Concomitant]
     Active Substance: BROMOCRIPTINE MESYLATE
  5. DANTROLENE. [Concomitant]
     Active Substance: DANTROLENE SODIUM
  6. TRAZODONE [Concomitant]
     Active Substance: TRAZODONE HYDROCHLORIDE

REACTIONS (12)
  - Hallucination, auditory [Recovered/Resolved]
  - Hallucination, visual [Recovered/Resolved]
  - Delusion [Unknown]
  - Psychomotor retardation [Recovered/Resolved]
  - Mental impairment [Recovered/Resolved]
  - Autonomic nervous system imbalance [Unknown]
  - Tremor [Recovered/Resolved]
  - Hypophagia [Recovered/Resolved]
  - Loss of personal independence in daily activities [Recovered/Resolved]
  - Neuroleptic malignant syndrome [Recovered/Resolved]
  - Toxicity to various agents [Recovered/Resolved]
  - Drug interaction [Recovered/Resolved]
